FAERS Safety Report 4776861-3 (Version None)
Quarter: 2005Q3

REPORT INFORMATION
  Report Type: 
  Country: None (occurrence: None)
  Receive Date: 20050921
  Receipt Date: 20050921
  Transmission Date: 20060218
  Serious: Yes (Death)
  Sender: FDA-Public Use
  Company Number: None

PATIENT
  Age: 20 Year
  Sex: Female

DRUGS (6)
  1. CYMBALTA [Suspect]
     Indication: BULIMIA NERVOSA
     Dosage: 60 MG ONE Q AM
     Dates: start: 19981001, end: 20050427
  2. CYMBALTA [Suspect]
     Indication: MAJOR DEPRESSION
     Dosage: 60 MG ONE Q AM
     Dates: start: 19981001, end: 20050427
  3. LEXAPRO [Concomitant]
  4. WELLBUTRIN [Concomitant]
  5. TOPAMAX [Concomitant]
  6. SEROQUEL [Concomitant]

REACTIONS (1)
  - UNEVALUABLE EVENT [None]
